FAERS Safety Report 20663487 (Version 8)
Quarter: 2023Q2

REPORT INFORMATION
  Report Type: Report from Study
  Country: DK (occurrence: DK)
  Receive Date: 20220401
  Receipt Date: 20230418
  Transmission Date: 20230721
  Serious: Yes (Hospitalization)
  Sender: FDA-Public Use
  Company Number: DK-EXELIXIS-XL18422050562

PATIENT

DRUGS (19)
  1. CABOZANTINIB [Suspect]
     Active Substance: CABOZANTINIB
     Indication: Metastatic renal cell carcinoma
     Dosage: 60 MG, QD
     Route: 048
     Dates: start: 20210922
  2. CABOZANTINIB [Suspect]
     Active Substance: CABOZANTINIB
     Dosage: 40 MG
     Route: 048
  3. ATEZOLIZUMAB [Suspect]
     Active Substance: ATEZOLIZUMAB
     Indication: Metastatic renal cell carcinoma
     Dosage: UNK
  4. LOSARTAN [Concomitant]
     Active Substance: LOSARTAN
     Indication: Hypertension
     Dosage: 100 MG, QD
     Route: 048
     Dates: start: 20160811
  5. FEXOFENADINE [Concomitant]
     Active Substance: FEXOFENADINE HYDROCHLORIDE
     Dosage: 180 MG,1 IN 1 AS REQUIRED
     Route: 048
     Dates: start: 20210414
  6. LOPERAMIDE [Concomitant]
     Active Substance: LOPERAMIDE
     Indication: Prophylaxis against diarrhoea
     Dosage: 2 MG 1 IN 1 AS REQUIRED
     Route: 048
     Dates: start: 20210922
  7. AMLODIPINE [Concomitant]
     Active Substance: AMLODIPINE BESYLATE
     Indication: Hypertension
     Dosage: 10 MG, QD
     Route: 048
     Dates: start: 20211007, end: 20220803
  8. FOLIC ACID [Concomitant]
     Active Substance: FOLIC ACID
     Indication: Stomatitis
     Dosage: 5 MG, QD
     Route: 048
     Dates: start: 20211013, end: 20220324
  9. ANDOLEX [Concomitant]
     Indication: Stomatitis
     Dosage: 15 ML1 IN 1 AS REQUIRED)
     Route: 048
     Dates: start: 20211103
  10. ONDANSETRON [Concomitant]
     Active Substance: ONDANSETRON
     Indication: Nausea
     Dosage: 8 MG, BID
     Route: 048
     Dates: start: 20211215, end: 20220803
  11. DEXAMETHASONE SODIUM PHOSPHATE [Concomitant]
     Active Substance: DEXAMETHASONE SODIUM PHOSPHATE
     Indication: Eye inflammation
     Dosage: 1 MG, QD
     Route: 047
     Dates: start: 20210503
  12. MABLET [Concomitant]
     Indication: Hypomagnesaemia
     Dosage: 360 MG, QD
     Route: 048
     Dates: start: 20220127
  13. ELOCON [Concomitant]
     Active Substance: MOMETASONE FUROATE
     Dosage: 01 OTHER, QD
     Route: 061
     Dates: start: 20220127
  14. Covid-19 vaccine PFIZER BIONTECH [Concomitant]
     Dosage: UNK
     Dates: start: 20210114
  15. Covid-19 vaccine PFIZER BIONTECH [Concomitant]
     Dosage: UNK
     Dates: start: 20210205
  16. Covid-19 vaccine PFIZER BIONTECH [Concomitant]
     Dosage: UNK
     Dates: start: 20211013
  17. Covid-19 vaccine PFIZER BIONTECH [Concomitant]
     Dosage: UNK
     Dates: start: 20220201
  18. IBUPROFEN [Concomitant]
     Active Substance: IBUPROFEN
     Indication: Pain
     Dosage: 400 MG, TID
     Route: 048
     Dates: start: 20220324
  19. IMOLOPE [Concomitant]
     Indication: Diarrhoea
     Dosage: 2 MG, 1 IN 1 AS REQUIRED
     Dates: start: 20211013

REACTIONS (1)
  - Appendicitis [Recovered/Resolved]

NARRATIVE: CASE EVENT DATE: 20220323
